FAERS Safety Report 4808122-8 (Version None)
Quarter: 2005Q4

REPORT INFORMATION
  Report Type: 
  Country: None (occurrence: None)
  Receive Date: 20051021
  Receipt Date: 20051006
  Transmission Date: 20060501
  Serious: Yes (Hospitalization)
  Sender: FDA-Public Use
  Company Number: A-US2005-10707

PATIENT
  Age: 35 Year
  Sex: Female

DRUGS (19)
  1. TRACLEER [Suspect]
     Indication: PULMONARY HYPERTENSION
     Dosage: 62.5 MG, BID, ORAL
     Route: 048
     Dates: start: 20050917
  2. SINGULAIR [Concomitant]
  3. GUAIFENESIN (GUAIFENESIN) [Concomitant]
  4. PREVACID [Concomitant]
  5. BIAXIN [Concomitant]
  6. ALLEGRA [Concomitant]
  7. PREDNISONE [Concomitant]
  8. CALCIUM (CALCIUM) [Concomitant]
  9. POTASSIUM (POTASSIUM) [Concomitant]
  10. RISEDRONIC ACID (RISEDRONIC ACID) [Concomitant]
  11. MEPHYTON (PHYTOMENADIONE) [Concomitant]
  12. NOVALOG [Concomitant]
  13. BACTRIM [Concomitant]
  14. DILTIAZEM [Concomitant]
  15. ALPRAZOLAM (ALPRAZOLAM) [Concomitant]
  16. CIPROFLOXACIN [Concomitant]
  17. COLISTON [Concomitant]
  18. PULMOZYME [Concomitant]
  19. XOPONEX (LEVOSALBUTAMOL) [Concomitant]

REACTIONS (9)
  - ATRIAL TACHYCARDIA [None]
  - BLOOD MAGNESIUM DECREASED [None]
  - CATHETER RELATED COMPLICATION [None]
  - DEEP VEIN THROMBOSIS [None]
  - DYSPNOEA [None]
  - ENTEROCOCCAL SEPSIS [None]
  - FUNGAEMIA [None]
  - HYPOMAGNESAEMIA [None]
  - SUPRAVENTRICULAR TACHYCARDIA [None]
